FAERS Safety Report 7064337-2 (Version None)
Quarter: 2010Q4

REPORT INFORMATION
  Report Type: 
  Country: None (occurrence: None)
  Receive Date: 20101027
  Receipt Date: 20101018
  Transmission Date: 20110411
  Serious: Yes (Other)
  Sender: FDA-Public Use
  Company Number: GB-JNJFOC-20100904706

PATIENT
  Age: 46 Year
  Sex: Female
  Weight: 67 kg

DRUGS (12)
  1. RISPERDAL [Suspect]
     Indication: ABNORMAL BEHAVIOUR
     Route: 048
  2. RISPERDAL [Suspect]
     Dosage: 1MG IN THE MORNING AND 2MG AT NIGHT
     Route: 048
  3. RISPERDAL [Suspect]
     Indication: MANIA
     Dosage: 1MG IN THE MORNING AND 2MG AT NIGHT
     Route: 048
  4. RISPERDAL [Suspect]
     Route: 048
  5. QUETIAPINE [Concomitant]
     Indication: MANIA
     Route: 065
  6. QUETIAPINE [Concomitant]
     Indication: ABNORMAL BEHAVIOUR
     Route: 065
  7. CARBAMAZEPINE [Concomitant]
     Indication: ABNORMAL BEHAVIOUR
     Route: 065
  8. CARBAMAZEPINE [Concomitant]
     Indication: MANIA
     Route: 065
  9. LITHIUM CARBONATE [Concomitant]
     Indication: ABNORMAL BEHAVIOUR
     Route: 065
  10. LITHIUM CARBONATE [Concomitant]
     Indication: MANIA
     Route: 065
  11. LACTULOSE [Concomitant]
     Indication: CONSTIPATION
     Route: 065
  12. CETIRIZINE HCL [Concomitant]
     Indication: PRODUCT USED FOR UNKNOWN INDICATION
     Route: 065

REACTIONS (8)
  - APHASIA [None]
  - DROOLING [None]
  - DYSPHAGIA [None]
  - FLUID INTAKE REDUCED [None]
  - GAIT DISTURBANCE [None]
  - HYPOPHAGIA [None]
  - SOMNOLENCE [None]
  - TREATMENT NONCOMPLIANCE [None]
